FAERS Safety Report 7558955-2 (Version None)
Quarter: 2011Q2

REPORT INFORMATION
  Report Type: 
  Country: None (occurrence: None)
  Receive Date: 20110613
  Receipt Date: 20110527
  Transmission Date: 20111010
  Serious: Yes (Life-Threatening)
  Sender: FDA-Public Use
  Company Number: 1000021529

PATIENT
  Age: 63 Year
  Sex: Male

DRUGS (6)
  1. PULMICORT (BUDESONIDE) (BUDESONIDE) [Concomitant]
  2. ROFLUMILAST (ROFLUMILAST) (500 MICROGRAM, TABLETS) [Suspect]
     Indication: CHRONIC OBSTRUCTIVE PULMONARY DISEASE
     Dosage: 500 MCG (500 MCG, 1 IN 1
     Dates: start: 20110519, end: 20110522
  3. LORAZEPAM [Concomitant]
  4. ADVAIR (FLUTICASONE. SALMETEROL0 [Concomitant]
  5. VENTOLINE (SALBUTAMOL) (SALBUTAMOL) [Concomitant]
  6. SPIRIVA (TIOTROPIUM BROMIDE) (TIOTROPIUM BROMIDE) [Concomitant]

REACTIONS (4)
  - TACHYCARDIA [None]
  - ASTHENIA [None]
  - CARDIAC FLUTTER [None]
  - HYPOTENSION [None]
